FAERS Safety Report 5704899-8 (Version None)
Quarter: 2008Q2

REPORT INFORMATION
  Report Type: 
  Country: None (occurrence: None)
  Receive Date: 20080414
  Receipt Date: 20080318
  Transmission Date: 20081010
  Serious: No
  Sender: FDA-Public Use
  Company Number: US-BOEHRINGER INGELHEIM GMBH, GERMANY-2008-BP-04730BP

PATIENT
  Sex: Male

DRUGS (9)
  1. SPIRIVA [Suspect]
     Indication: EMPHYSEMA
     Dates: start: 20070101
  2. SPIRIVA [Suspect]
     Indication: CHRONIC OBSTRUCTIVE PULMONARY DISEASE
  3. ALBUTEROL SULFATE [Concomitant]
     Indication: DYSPNOEA
  4. ALBUTEROL SULFATE [Concomitant]
  5. ALBUTEROL SULFATE [Concomitant]
  6. ALBUTEROL SULFATE [Concomitant]
  7. ATROVENT HFA [Concomitant]
  8. COMBIVENT [Concomitant]
  9. FORADIL [Concomitant]

REACTIONS (1)
  - HYPERSENSITIVITY [None]
